FAERS Safety Report 9701210 (Version 1)
Quarter: 2013Q4

REPORT INFORMATION
  Report Type: Spontaneous
  Country: US (occurrence: US)
  Receive Date: 20131121
  Receipt Date: 20131121
  Transmission Date: 20140711
  Serious: No
  Sender: FDA-Public Use
  Company Number: US-GILEAD-2008-0016084

PATIENT
  Age: 75 Year
  Sex: Female

DRUGS (4)
  1. LETAIRIS [Suspect]
     Indication: PULMONARY ARTERIAL HYPERTENSION
     Route: 048
     Dates: start: 20080324
  2. DYAZIDE [Concomitant]
     Route: 048
  3. LEVOXYL [Concomitant]
     Route: 048
  4. MAGNESIUM [Concomitant]
     Route: 048

REACTIONS (5)
  - Decreased appetite [Unknown]
  - Asthenia [Unknown]
  - Insomnia [Unknown]
  - Abdominal pain upper [Unknown]
  - Local swelling [Unknown]
